FAERS Safety Report 10375859 (Version 1)
Quarter: 2014Q1

REPORT INFORMATION
  Report Type: Spontaneous
  Country: US (occurrence: None)
  Receive Date: 20140306
  Receipt Date: 20140306
  Transmission Date: 20141002
  Serious: Yes (Hospitalization)
  Sender: FDA-Public Use
  Company Number: 163-21880-13110906

PATIENT
  Age: 67 Year
  Sex: Female

DRUGS (17)
  1. REVLIMID (LENALIDOMIDE) (CAPSULES) [Suspect]
     Indication: PLASMA CELL MYELOMA
     Route: 048
     Dates: start: 20130925
  2. 10 VEGETABLE MULTI PLEX (OTHER THERAPEUTIC PRODUCTS) [Concomitant]
  3. PLAVIX (CLOPIDOGREL SULFATE) [Concomitant]
  4. COQ10 (UBIDECARENONE) (LIQUID) [Concomitant]
  5. DEXAMETHASONE [Concomitant]
  6. DILTIAZEM [Concomitant]
  7. LASIX (FUROSEMIDE) [Concomitant]
  8. GRAPESEED EXTRACT (VITIS VINIFERA SEED) [Concomitant]
  9. ISOSORBIDE MONONITRATE [Concomitant]
  10. LOPRESSOR (METOPROLOL TARTRATE [Concomitant]
  11. MULTAQ (DRONEDARONE HYDROCHLORIDE) [Concomitant]
  12. KLOR-CON (POTASSIUM CHLORIDE) [Concomitant]
  13. PRAVASTATIN [Concomitant]
  14. PREDNISONE [Concomitant]
  15. VITAMIN B-12 (CYANOCOBALAMIN) [Concomitant]
  16. VITAMIN B-12 (CYANOCOBALAMIN) [Concomitant]
  17. VITAMIN D-3 (COLECALCIFEROL) [Concomitant]

REACTIONS (2)
  - Syncope [None]
  - Bradycardia [None]
